FAERS Safety Report 9109390 (Version 3)
Quarter: 2013Q2

REPORT INFORMATION
  Report Type: Spontaneous
  Country: US (occurrence: US)
  Receive Date: 20130222
  Receipt Date: 20130423
  Transmission Date: 20140414
  Serious: No
  Sender: FDA-Public Use
  Company Number: US-JNJFOC-20130207750

PATIENT
  Sex: Female
  Weight: 100.7 kg

DRUGS (8)
  1. DURAGESIC [Suspect]
     Indication: PAIN
     Route: 062
  2. DURAGESIC [Suspect]
     Indication: PAIN
     Route: 062
  3. OXYCONTIN [Suspect]
     Indication: PAIN
     Route: 048
  4. OPANA ER [Concomitant]
     Indication: PAIN
     Route: 065
  5. INDOMETHACIN [Concomitant]
     Indication: JOINT SWELLING
     Route: 065
  6. OMEPRAZOLE [Concomitant]
     Indication: ULCER
     Route: 065
  7. SIMVASTATIN [Concomitant]
     Indication: BLOOD CHOLESTEROL
     Route: 065
  8. PREMARIN [Concomitant]
     Indication: HORMONE REPLACEMENT THERAPY
     Route: 065

REACTIONS (5)
  - Pain [Unknown]
  - Product quality issue [Unknown]
  - Wrong technique in drug usage process [Unknown]
  - Product quality issue [Unknown]
  - Drug ineffective [Unknown]
